FAERS Safety Report 14873943 (Version 1)
Quarter: 2018Q2

REPORT INFORMATION
  Report Type: Spontaneous
  Country: US (occurrence: US)
  Receive Date: 20180510
  Receipt Date: 20180510
  Transmission Date: 20180711
  Serious: No
  Sender: FDA-Public Use
  Company Number: US-MALLINCKRODT-T201703761

PATIENT
  Age: 34 Year
  Sex: Male

DRUGS (2)
  1. METHADONE [Suspect]
     Active Substance: METHADONE HYDROCHLORIDE
     Indication: DRUG DEPENDENCE
     Dosage: 120 MG (3 X 40 MG WAFERS), ONCE DAILY
     Route: 065
     Dates: start: 20160729, end: 20170817
  2. METHADONE [Suspect]
     Active Substance: METHADONE HYDROCHLORIDE
     Dosage: 120 MG (3 X 40 MG WAFERS), ONCE DAILY
     Route: 065
     Dates: start: 20170824

REACTIONS (6)
  - Hyperhidrosis [Unknown]
  - Malaise [Unknown]
  - Drug ineffective [Unknown]
  - Rhinorrhoea [Unknown]
  - Nausea [Unknown]
  - Withdrawal syndrome [Unknown]
